FAERS Safety Report 7596965-X (Version None)
Quarter: 2011Q3

REPORT INFORMATION
  Report Type: 
  Country: None (occurrence: None)
  Receive Date: 20110708
  Receipt Date: 20110705
  Transmission Date: 20111222
  Serious: Yes (Hospitalization)
  Sender: FDA-Public Use
  Company Number: JP-SANOFI-AVENTIS-2011SA031286

PATIENT
  Age: 17 Year
  Sex: Male
  Weight: 57.5 kg

DRUGS (4)
  1. ALLEGRA [Suspect]
     Route: 048
     Dates: start: 20100313, end: 20100317
  2. OLOPATADINE HCL [Concomitant]
     Route: 048
     Dates: start: 20090428, end: 20090517
  3. BIOFERMIN [Concomitant]
     Indication: ENTEROCOLITIS
     Route: 048
     Dates: start: 20101117, end: 20101121
  4. ALLEGRA [Suspect]
     Route: 048
     Dates: start: 20101117, end: 20101121

REACTIONS (1)
  - TUBULOINTERSTITIAL NEPHRITIS [None]
